FAERS Safety Report 7032062-X (Version None)
Quarter: 2010Q4

REPORT INFORMATION
  Report Type: 
  Country: None (occurrence: None)
  Receive Date: 20101007
  Receipt Date: 20100928
  Transmission Date: 20110411
  Serious: Yes (Hospitalization)
  Sender: FDA-Public Use
  Company Number: BR-ASTRAZENECA-2010SE45961

PATIENT
  Age: 74 Year
  Sex: Female

DRUGS (2)
  1. SEROQUEL [Suspect]
     Indication: DEMENTIA ALZHEIMER'S TYPE
     Route: 048
     Dates: start: 20060101, end: 20100801
  2. SEROQUEL [Suspect]
     Route: 048

REACTIONS (6)
  - INSOMNIA [None]
  - MALIGNANT HYPERTENSION [None]
  - OFF LABEL USE [None]
  - PARKINSON'S DISEASE [None]
  - RESTLESSNESS [None]
  - URINARY TRACT INFECTION [None]
